FAERS Safety Report 24451906 (Version 1)
Quarter: 2024Q4

REPORT INFORMATION
  Report Type: Spontaneous
  Country: US (occurrence: US)
  Receive Date: 20241017
  Receipt Date: 20241017
  Transmission Date: 20250115
  Serious: No
  Sender: GALDERMA
  Company Number: US-GALDERMA-US2024012597

PATIENT

DRUGS (3)
  1. DIFFERIN GEL [Suspect]
     Active Substance: ADAPALENE
     Indication: Acne
     Dosage: 1 DOSAGE FORM
     Route: 061
  2. COSMETICS [Suspect]
     Active Substance: COSMETICS
     Indication: Acne
     Dosage: 1 DOSAGE FORM
     Route: 061
  3. ACCUTANE [Concomitant]
     Active Substance: ISOTRETINOIN
     Indication: Acne

REACTIONS (5)
  - Pain of skin [Unknown]
  - Acne cystic [Unknown]
  - Acne [Recovered/Resolved]
  - Acne pustular [Recovered/Resolved]
  - Scar [Unknown]
